FAERS Safety Report 6659941-7 (Version None)
Quarter: 2010Q1

REPORT INFORMATION
  Report Type: 
  Country: None (occurrence: None)
  Receive Date: 20100330
  Receipt Date: 20100325
  Transmission Date: 20100710
  Serious: Yes (Hospitalization)
  Sender: FDA-Public Use
  Company Number: US-BRISTOL-MYERS SQUIBB COMPANY-15018922

PATIENT
  Age: 56 Year
  Sex: Female

DRUGS (8)
  1. ABILIFY [Suspect]
     Indication: PARANOIA
     Route: 048
     Dates: start: 20100206, end: 20100307
  2. TRAZODONE HCL [Suspect]
     Indication: DEPRESSION
  3. CELEXA [Suspect]
     Indication: DEPRESSION
  4. CLONAZEPAM [Suspect]
  5. OMEPRAZOLE [Concomitant]
  6. SYNTHROID [Concomitant]
  7. OXYCODONE [Concomitant]
  8. NEURONTIN [Concomitant]

REACTIONS (1)
  - NEUROLEPTIC MALIGNANT SYNDROME [None]
